FAERS Safety Report 4545497-1 (Version None)
Quarter: 2005Q1

REPORT INFORMATION
  Report Type: 
  Country: None (occurrence: None)
  Receive Date: 20050105
  Receipt Date: 20041227
  Transmission Date: 20050727
  Serious: Yes (Hospitalization)
  Sender: FDA-Public Use
  Company Number: SE-MERCK-0412SWE00045

PATIENT
  Age: 56 Year
  Sex: Male

DRUGS (7)
  1. EDECRIN [Suspect]
     Indication: PANCREATITIS
     Route: 042
     Dates: start: 20041022, end: 20041022
  2. METOLAZONE [Suspect]
     Indication: PANCREATITIS
     Route: 048
     Dates: start: 20041023, end: 20041023
  3. FUROSEMIDE [Suspect]
     Indication: PANCREATITIS
     Route: 042
     Dates: start: 20041022, end: 20041024
  4. TOBRAMYCIN SULFATE [Suspect]
     Indication: PANCREATITIS
     Route: 042
     Dates: start: 20041022, end: 20041022
  5. DALTEPARIN SODIUM [Concomitant]
     Route: 065
  6. MEROPENEM [Concomitant]
     Route: 065
  7. PANTOPRAZOLE SODIUM [Concomitant]
     Route: 065

REACTIONS (5)
  - BLOOD CREATININE INCREASED [None]
  - DEAFNESS NEUROSENSORY [None]
  - HAEMODIALYSIS [None]
  - HEARING IMPAIRED [None]
  - MULTI-ORGAN FAILURE [None]
